FAERS Safety Report 4287402-1 (Version None)
Quarter: 2004Q1

REPORT INFORMATION
  Report Type: 
  Country: None (occurrence: None)
  Receive Date: 20040209
  Receipt Date: 20030620
  Transmission Date: 20041129
  Serious: No
  Sender: FDA-Public Use
  Company Number: US-GLAXOSMITHKLINE-A0413334A

PATIENT
  Age: 60 Year
  Sex: Female

DRUGS (5)
  1. PAXIL CR [Suspect]
     Dosage: 25MG PER DAY
     Route: 048
     Dates: start: 20021001
  2. ZESTRIL [Concomitant]
  3. LIPITOR [Concomitant]
  4. RHINOCORT [Concomitant]
  5. PROTONIX [Concomitant]

REACTIONS (3)
  - ABNORMAL DREAMS [None]
  - AMNESIA [None]
  - FLAT AFFECT [None]
